FAERS Safety Report 19235740 (Version 1)
Quarter: 2021Q2

REPORT INFORMATION
  Report Type: Spontaneous
  Country: US (occurrence: US)
  Receive Date: 20210510
  Receipt Date: 20210510
  Transmission Date: 20210717
  Serious: No
  Sender: FDA-Public Use
  Company Number: US-SA-2021SA151208

PATIENT
  Sex: Female

DRUGS (6)
  1. DUPIXENT [Suspect]
     Active Substance: DUPILUMAB
     Indication: DERMATITIS ATOPIC
     Dosage: 300 MG, QOW
     Route: 058
  2. PFIZER?BIONTECH COVID?19 VACCINE [Suspect]
     Active Substance: TOZINAMERAN
     Dosage: UNK
  3. METHOCARBAMOL. [Concomitant]
     Active Substance: METHOCARBAMOL
  4. BOTOX [Concomitant]
     Active Substance: ONABOTULINUMTOXINA
  5. MOTRIN IB [Concomitant]
     Active Substance: IBUPROFEN
  6. IMITREX [Concomitant]
     Active Substance: SUMATRIPTAN SUCCINATE

REACTIONS (2)
  - Vomiting [Unknown]
  - Migraine [Unknown]
